FAERS Safety Report 7993101-2 (Version None)
Quarter: 2011Q4

REPORT INFORMATION
  Report Type: 
  Country: None (occurrence: None)
  Receive Date: 20111219
  Receipt Date: 20110427
  Transmission Date: 20120403
  Serious: No
  Sender: FDA-Public Use
  Company Number: US-ASTRAZENECA-2011SE25295

PATIENT
  Age: 58 Year
  Sex: Female

DRUGS (2)
  1. CYMBALTA [Concomitant]
  2. CRESTOR [Suspect]
     Route: 048

REACTIONS (3)
  - DISORIENTATION [None]
  - ACTIVITIES OF DAILY LIVING IMPAIRED [None]
  - DECREASED INTEREST [None]
